FAERS Safety Report 13493511 (Version 1)
Quarter: 2017Q2

REPORT INFORMATION
  Report Type: Spontaneous
  Country: US (occurrence: US)
  Receive Date: 20170427
  Receipt Date: 20170427
  Transmission Date: 20170830
  Serious: Yes (Other)
  Sender: FDA-Public Use
  Company Number: US-ROCHE-1405637

PATIENT
  Sex: Male

DRUGS (1)
  1. ERIVEDGE [Suspect]
     Active Substance: VISMODEGIB
     Indication: PRODUCT USED FOR UNKNOWN INDICATION
     Route: 048
     Dates: start: 20140213

REACTIONS (6)
  - Nausea [Not Recovered/Not Resolved]
  - Confusional state [Not Recovered/Not Resolved]
  - Dysgeusia [Unknown]
  - Decreased appetite [Not Recovered/Not Resolved]
  - Weight decreased [Not Recovered/Not Resolved]
  - Vomiting [Not Recovered/Not Resolved]
